FAERS Safety Report 7404503-7 (Version None)
Quarter: 2011Q2

REPORT INFORMATION
  Report Type: 
  Country: None (occurrence: None)
  Receive Date: 20110408
  Receipt Date: 20110331
  Transmission Date: 20111010
  Serious: Yes (Other)
  Sender: FDA-Public Use
  Company Number: JP-PFIZER INC-2011077161

PATIENT
  Age: 58 Year
  Sex: Female

DRUGS (7)
  1. CELECOX [Suspect]
     Indication: ARTHRALGIA
     Dosage: 200 MG DAILY
     Route: 048
     Dates: start: 20101001, end: 20101101
  2. TRYPTANOL [Concomitant]
     Dosage: UNK
     Route: 048
     Dates: start: 20110303, end: 20110324
  3. HALCION [Concomitant]
     Dosage: UNK
  4. TIOSTAR [Concomitant]
     Dosage: UNK
  5. BETAMAC [Concomitant]
     Dosage: UNK
  6. DEPAS [Concomitant]
     Dosage: UNK
  7. THYRADIN [Concomitant]
     Dosage: UNK

REACTIONS (1)
  - PLATELET COUNT DECREASED [None]
